FAERS Safety Report 15500652 (Version 2)
Quarter: 2018Q4

REPORT INFORMATION
  Report Type: Spontaneous
  Country: IN (occurrence: IN)
  Receive Date: 20181015
  Receipt Date: 20181016
  Transmission Date: 20190205
  Serious: Yes (Other)
  Sender: FDA-Public Use
  Company Number: IN-UNICHEM PHARMACEUTICALS (USA) INC-UCM201810-000263

PATIENT
  Age: 5 Year
  Sex: Male

DRUGS (6)
  1. LAMOTRIGINE. [Concomitant]
     Active Substance: LAMOTRIGINE
  2. CLONAZEPAM. [Concomitant]
     Active Substance: CLONAZEPAM
  3. TOPIRAMATE. [Suspect]
     Active Substance: TOPIRAMATE
  4. DIVALPROEX SODIUM. [Suspect]
     Active Substance: DIVALPROEX SODIUM
  5. PHENOBARBITAL. [Suspect]
     Active Substance: PHENOBARBITAL
  6. CLOBAZAM. [Concomitant]
     Active Substance: CLOBAZAM

REACTIONS (3)
  - Hyperammonaemic encephalopathy [Recovered/Resolved]
  - Drug interaction [Unknown]
  - Seizure [Recovering/Resolving]
